FAERS Safety Report 23389283 (Version 1)
Quarter: 2024Q1

REPORT INFORMATION
  Report Type: Spontaneous
  Country: US (occurrence: US)
  Receive Date: 20240110
  Receipt Date: 20240110
  Transmission Date: 20240410
  Serious: No
  Sender: FDA-Public Use
  Company Number: US-REGENERON PHARMACEUTICALS, INC.-2023-014316

PATIENT
  Sex: Male

DRUGS (1)
  1. EYLEA [Suspect]
     Active Substance: AFLIBERCEPT
     Indication: Macular degeneration
     Dosage: IN THE LEFT EYE (FORMULATION: UNKNOWN)
     Route: 031

REACTIONS (1)
  - Fibrin D dimer increased [Unknown]

NARRATIVE: CASE EVENT DATE: 20230110
